FAERS Safety Report 8057991-X (Version None)
Quarter: 2011Q4

REPORT INFORMATION
  Report Type: 
  Country: None (occurrence: None)
  Receive Date: 20111220
  Receipt Date: 20110525
  Transmission Date: 20120403
  Serious: Yes (Other)
  Sender: FDA-Public Use
  Company Number: PHHY2011US34365

PATIENT
  Sex: Female

DRUGS (16)
  1. LEVOTHYROXINE SODIUM [Concomitant]
  2. MULTIVITAMINS (ASCORBIC ACID, ERGOCALCIFEROL, FOLIC ACID, NICOTINAMIDE [Concomitant]
  3. FERROUS SULFPAHE (FERROUS SULFATE) [Concomitant]
  4. LOVAZA [Concomitant]
  5. VACCINIUM MACROCARPON (VACCINIUM MACROCARPON) [Concomitant]
  6. BLACK COHOSH (CIMICIFUGA RACEMOSA ROOT) [Concomitant]
  7. OMEPRAZOLE [Concomitant]
  8. VITAMIN E [Concomitant]
  9. PROGRAF [Suspect]
     Indication: RENAL TRANSPLANT
     Dosage: 3 MG,  BID, ORAL
     Route: 048
     Dates: start: 20091112
  10. HYDROCODONE BITARTRATE [Concomitant]
  11. NIACIN [Concomitant]
  12. VITAMIN D [Concomitant]
  13. CLONAZEPAM [Concomitant]
  14. MAGNESIUM (MAGNESIUM) [Concomitant]
  15. MYFORTIC [Suspect]
     Indication: COMPLICATIONS OF TRANSPLANTED KIDNEY
     Dosage: 540 MG,  BID, ORAL
     Route: 048
     Dates: start: 20091112
  16. MYFORTIC [Suspect]
     Indication: COMPLICATIONS OF TRANSPLANTED KIDNEY
     Dosage: 540 MG,  BID, ORAL
     Route: 048
     Dates: start: 20091101, end: 20110301

REACTIONS (3)
  - RASH MACULAR [None]
  - WHITE BLOOD CELL COUNT DECREASED [None]
  - SQUAMOUS CELL CARCINOMA [None]
